FAERS Safety Report 9778676 (Version 3)
Quarter: 2014Q2

REPORT INFORMATION
  Report Type: Spontaneous
  Country: IT (occurrence: IT)
  Receive Date: 20131223
  Receipt Date: 20140429
  Transmission Date: 20141212
  Serious: Yes (Hospitalization)
  Sender: FDA-Public Use
  Company Number: IT-SA-2013SA130204

PATIENT
  Age: 75 Year
  Sex: Male

DRUGS (14)
  1. LASIX [Suspect]
     Indication: DIURETIC THERAPY
     Route: 048
     Dates: start: 20130101, end: 20130904
  2. CIPROFLOXACIN [Suspect]
     Indication: URINARY TRACT INFECTION
     Route: 048
     Dates: start: 20130902, end: 20130903
  3. RISPERDAL [Suspect]
     Indication: PRODUCT USED FOR UNKNOWN INDICATION
     Route: 048
     Dates: start: 20130605, end: 20130904
  4. ZOLOFT [Suspect]
     Indication: DEPRESSION
     Route: 048
     Dates: start: 20130601, end: 20130904
  5. MIRTAZAPINE [Suspect]
     Indication: DEPRESSION
     Route: 048
     Dates: start: 20130601, end: 20130904
  6. LANSOX [Concomitant]
     Dosage: STRENGTH 30 MG?HARD CAPSULE
  7. TOP-NITRO [Concomitant]
     Dosage: STRENGTH 5 MG DIETRANSDERMAL PATCHES
  8. HUMULIN [Concomitant]
     Dosage: 1 FLAC 10 ML 1000/ML
  9. DIBASE [Concomitant]
     Dosage: STRENGTH 10,000 IU/ML
  10. SERETIDE [Concomitant]
     Dosage: 25/250 MCG PRESSURIZED INHALATION?SUSPENSION 1 DOSE INHALER TO 120
  11. SPIRIVA [Concomitant]
     Dosage: BLISTER WITH 18 MCG INHALER
     Route: 055
  12. COUMADIN [Concomitant]
     Dosage: 5 MG STRENGTH
  13. POTASSIUM CANRENOATE [Concomitant]
     Dosage: STRENGTH 100 MG
  14. TORVAST [Concomitant]
     Dosage: STRENGTH: 10 MG

REACTIONS (5)
  - Syncope [Recovering/Resolving]
  - Sopor [Recovering/Resolving]
  - Disorientation [Recovering/Resolving]
  - Speech disorder [Recovering/Resolving]
  - Hypotension [Recovering/Resolving]
